FAERS Safety Report 10086280 (Version 3)
Quarter: 2014Q2

REPORT INFORMATION
  Report Type: Spontaneous
  Country: CN (occurrence: CN)
  Receive Date: 20140418
  Receipt Date: 20140602
  Transmission Date: 20141212
  Serious: Yes (Other)
  Sender: FDA-Public Use
  Company Number: CN-SA-2014SA042239

PATIENT
  Age: 62 Year
  Sex: Male
  Weight: 89 kg

DRUGS (2)
  1. PLAVIX [Suspect]
     Indication: THROMBOSIS
     Route: 048
     Dates: start: 20120916
  2. ASPIRIN [Suspect]
     Indication: THROMBOSIS
     Route: 048
     Dates: start: 20120916, end: 20140415

REACTIONS (1)
  - Chronic gastritis [Recovering/Resolving]
